FAERS Safety Report 9178410 (Version 1)
Quarter: 2013Q1

REPORT INFORMATION
  Report Type: Spontaneous
  Country: US (occurrence: US)
  Receive Date: 20130321
  Receipt Date: 20130321
  Transmission Date: 20140127
  Serious: No
  Sender: FDA-Public Use
  Company Number: US-ASTRAZENECA-2013SE16096

PATIENT
  Age: 66 Year
  Sex: Female
  Weight: 63.5 kg

DRUGS (7)
  1. PULMICORT FLEXHALER [Suspect]
     Indication: ASTHMA
     Dosage: 180 MCG, 1 PUFF, TWO TIMES A DAY
     Route: 055
  2. PULMICORT FLEXHALER [Suspect]
     Indication: ASTHMA
     Dosage: 80 MCG, 1 PUFF, TWO TIMES A DAY
     Route: 055
  3. PULMICORT FLEXHALER [Suspect]
     Indication: ASTHMA
     Dosage: PULMICORT RESPULES
     Route: 055
  4. XOPINEX [Concomitant]
  5. SYNTHROID [Concomitant]
  6. LUMAGEN [Concomitant]
  7. SIMVASTATIN [Concomitant]

REACTIONS (5)
  - Influenza like illness [Unknown]
  - Back pain [Unknown]
  - Pain [Unknown]
  - Nausea [Unknown]
  - Off label use [Unknown]
